FAERS Safety Report 9685462 (Version 1)
Quarter: 2013Q4

REPORT INFORMATION
  Report Type: Spontaneous
  Country: US (occurrence: None)
  Receive Date: 20131112
  Receipt Date: 20131112
  Transmission Date: 20140711
  Serious: No
  Sender: FDA-Public Use
  Company Number: None

PATIENT
  Age: 4 Year
  Sex: Female
  Weight: 12.6 kg

DRUGS (1)
  1. ZOSYN [Suspect]
     Indication: BACTERIAL SEPSIS
     Route: 042
     Dates: start: 20131029

REACTIONS (5)
  - Heart rate increased [None]
  - Swelling face [None]
  - Face oedema [None]
  - Vomiting [None]
  - Diarrhoea [None]
